FAERS Safety Report 16248304 (Version 2)
Quarter: 2019Q2

REPORT INFORMATION
  Report Type: Spontaneous
  Country: US (occurrence: US)
  Receive Date: 20190429
  Receipt Date: 20190502
  Transmission Date: 20190711
  Serious: No
  Sender: FDA-Public Use
  Company Number: US-TEVA-2019-US-1038736

PATIENT
  Age: 17 Year
  Sex: Female

DRUGS (2)
  1. ATOMOXETINE CAPSULES TEVA [Suspect]
     Active Substance: ATOMOXETINE
     Indication: ATTENTION DEFICIT/HYPERACTIVITY DISORDER
     Route: 065
     Dates: start: 201802, end: 201804
  2. ATOMOXETINE CAPSULES TEVA [Suspect]
     Active Substance: ATOMOXETINE
     Route: 065
     Dates: start: 201904

REACTIONS (4)
  - Emotional distress [Unknown]
  - Drug ineffective [Unknown]
  - Tremor [Unknown]
  - Anxiety [Unknown]

NARRATIVE: CASE EVENT DATE: 201803
